FAERS Safety Report 24729462 (Version 1)
Quarter: 2024Q4

REPORT INFORMATION
  Report Type: Spontaneous
  Country: US (occurrence: US)
  Receive Date: 20241213
  Receipt Date: 20241213
  Transmission Date: 20250114
  Serious: No
  Sender: ACCORD
  Company Number: US-Accord-444114

PATIENT
  Sex: Female

DRUGS (1)
  1. LEVOTHYROXINE SODIUM [Suspect]
     Active Substance: LEVOTHYROXINE SODIUM
     Indication: Product used for unknown indication
     Dosage: STRENGTH: 175MCG, RECEIVED IN PHARMACY BOTTLE

REACTIONS (1)
  - Poor quality product administered [Unknown]
